FAERS Safety Report 5576021-2 (Version None)
Quarter: 2007Q4

REPORT INFORMATION
  Report Type: 
  Country: None (occurrence: None)
  Receive Date: 20071228
  Receipt Date: 20070917
  Transmission Date: 20080405
  Serious: No
  Sender: FDA-Public Use
  Company Number: A0682434A

PATIENT
  Age: 45 Year
  Sex: Female

DRUGS (8)
  1. ADVAIR DISKUS 100/50 [Suspect]
     Indication: ASTHMA
     Dosage: 1PUFF TWICE PER DAY
     Route: 055
     Dates: start: 20070401
  2. ALBUTEROL [Concomitant]
  3. SINGULAIR [Concomitant]
  4. VENTOLIN [Concomitant]
  5. SYNTHROID [Concomitant]
  6. GLUCOPHAGE [Concomitant]
  7. ZITHROMAX [Concomitant]
  8. PREDNISONE [Concomitant]

REACTIONS (1)
  - CANDIDIASIS [None]
